FAERS Safety Report 5524373-1 (Version None)
Quarter: 2007Q4

REPORT INFORMATION
  Report Type: 
  Country: None (occurrence: None)
  Receive Date: 20071121
  Receipt Date: 20071113
  Transmission Date: 20080405
  Serious: Yes (Other)
  Sender: FDA-Public Use
  Company Number: US-PFIZER INC-2007096309

PATIENT
  Sex: Male
  Weight: 102.1 kg

DRUGS (9)
  1. GLIPIZIDE [Suspect]
     Indication: DIABETES MELLITUS
  2. LYRICA [Suspect]
     Indication: DIABETIC NEUROPATHY
  3. GABAPENTIN [Suspect]
     Indication: DIABETIC NEUROPATHY
  4. ALBUTEROL [Concomitant]
  5. COZAAR [Concomitant]
  6. LISINOPRIL [Concomitant]
  7. ANALGESICS [Concomitant]
  8. ACETYLSALICYLIC ACID SRT [Concomitant]
  9. METFORMIN HCL [Concomitant]

REACTIONS (3)
  - BLOOD GLUCOSE DECREASED [None]
  - BLOOD GLUCOSE INCREASED [None]
  - COLD SWEAT [None]
